FAERS Safety Report 11101680 (Version 1)
Quarter: 2015Q2

REPORT INFORMATION
  Report Type: Spontaneous
  Country: US (occurrence: US)
  Receive Date: 20150508
  Receipt Date: 20150508
  Transmission Date: 20150821
  Serious: Yes (Other)
  Sender: FDA-Public Use
  Company Number: US-009507513-1504USA021797

PATIENT

DRUGS (4)
  1. CORTICOTROPIN GEL [Suspect]
     Active Substance: CORTICOTROPIN
     Dosage: 75 IU/M2 DAILY SECOND WEEK
  2. CORTICOTROPIN GEL [Suspect]
     Active Substance: CORTICOTROPIN
     Indication: INFANTILE SPASMS
     Dosage: 75 IU/M2 DAILY
  3. CORTICOTROPIN GEL [Suspect]
     Active Substance: CORTICOTROPIN
     Dosage: 75 IU/M2 DAILY FIRST WEEK
  4. CORTICOTROPIN GEL [Suspect]
     Active Substance: CORTICOTROPIN
     Dosage: 75 IU/M2 EVERY OTHER DAY THIRD AND FOURTH WEEK

REACTIONS (2)
  - Sepsis [None]
  - Drug ineffective [Unknown]
